FAERS Safety Report 9806043 (Version 3)
Quarter: 2014Q2

REPORT INFORMATION
  Report Type: Report from Study
  Country: JP (occurrence: JP)
  Receive Date: 20140109
  Receipt Date: 20140523
  Transmission Date: 20141212
  Serious: Yes (Hospitalization)
  Sender: FDA-Public Use
  Company Number: JP-PFIZER INC-2014002970

PATIENT
  Age: 40 Year
  Sex: Female
  Weight: 51.2 kg

DRUGS (12)
  1. REVATIO [Suspect]
     Indication: PULMONARY HYPERTENSION
     Dosage: 20 MG, 3X/DAY
     Route: 048
     Dates: start: 20090115, end: 20100728
  2. REVATIO [Suspect]
     Dosage: 20 MG, 3X/DAY
     Route: 048
     Dates: start: 20101227
  3. TAKEPRON [Concomitant]
     Dosage: UNK
     Route: 048
     Dates: end: 20100728
  4. TAKEPRON [Concomitant]
     Dosage: UNK
  5. PREDONINE [Concomitant]
     Dosage: UNK
     Route: 048
     Dates: end: 20100728
  6. PREDONINE [Concomitant]
     Dosage: UNK
  7. POWDERED BUSHI [Concomitant]
     Indication: ANAEMIA
     Dosage: UNK
     Route: 048
     Dates: end: 20100728
  8. FOSAMAC [Concomitant]
     Dosage: UNK
     Route: 048
     Dates: start: 20100204, end: 20100728
  9. BERASUS LA [Concomitant]
     Indication: PULMONARY HYPERTENSION
     Dosage: UNK
     Route: 048
     Dates: end: 20100728
  10. FERROMIA [Concomitant]
     Dosage: UNK
     Route: 048
     Dates: start: 20100401, end: 20100715
  11. GENTACIN [Concomitant]
     Dosage: UNK
     Route: 061
     Dates: start: 20100519
  12. LAC B [Concomitant]
     Dosage: UNK
     Route: 048
     Dates: start: 20100715, end: 20100722

REACTIONS (3)
  - Oesophageal varices haemorrhage [Recovered/Resolved]
  - Melaena [Recovered/Resolved]
  - Hepatocellular injury [Recovered/Resolved]
